FAERS Safety Report 13436210 (Version 1)
Quarter: 2017Q2

REPORT INFORMATION
  Report Type: Spontaneous
  Country: US (occurrence: US)
  Receive Date: 20170413
  Receipt Date: 20170413
  Transmission Date: 20170830
  Serious: Yes (Death)
  Sender: FDA-Public Use
  Company Number: US-PFIZER INC-2017156325

PATIENT
  Age: 65 Year
  Sex: Male

DRUGS (13)
  1. SUTENT [Suspect]
     Active Substance: SUNITINIB MALATE
     Indication: RENAL CANCER
     Dosage: 37.5 MG, CYCLIC [EVERY DAY FOR 14 DAYS ON THEN 7 DAYS OFF]
     Route: 048
     Dates: start: 20170215
  2. CHLORPHEN [Concomitant]
     Dosage: 4 MG, UNK
  3. FOLIC ACID. [Concomitant]
     Active Substance: FOLIC ACID
     Dosage: 20 MG, UNK
  4. FENTANYL. [Concomitant]
     Active Substance: FENTANYL
     Dosage: UNK [25MCG/HR]
  5. HYDROCHLOROTHIAZIDE/POTASSIUM CHLORIDE [Concomitant]
     Dosage: 10 MEQ, UNK
  6. ENALAPRIL [Concomitant]
     Active Substance: ENALAPRIL
     Dosage: 20 MG, UNK
  7. AMLODIPINE [Concomitant]
     Active Substance: AMLODIPINE BESYLATE
     Dosage: 10 MG, UNK
  8. CIPROFLOXACIN. [Concomitant]
     Active Substance: CIPROFLOXACIN
     Dosage: 500 MG, UNK
  9. AMOX/K CLAV [Concomitant]
     Active Substance: AMOXICILLIN\CLAVULANATE POTASSIUM
     Dosage: UNK (AMOXICILLIN- 875, CLAVULANATE POTASSIUM-125)
  10. BENZONATATE. [Concomitant]
     Active Substance: BENZONATATE
     Dosage: 100 MG, UNK
  11. DOXYCYCLINE HYCLATE. [Concomitant]
     Active Substance: DOXYCYCLINE HYCLATE
     Dosage: 100 MG, UNK
  12. DRONABINOL. [Concomitant]
     Active Substance: DRONABINOL
     Dosage: 5 MG, UNK
  13. PROMETHAZINE VC WITH CODEINE [Concomitant]
     Active Substance: CODEINE PHOSPHATE\PHENYLEPHRINE HYDROCHLORIDE\PROMETHAZINE HYDROCHLORIDE
     Dosage: UNK

REACTIONS (1)
  - Death [Fatal]
